FAERS Safety Report 8957841 (Version 1)
Quarter: 2012Q4

REPORT INFORMATION
  Report Type: 
  Country: JP (occurrence: JP)
  Receive Date: 20121210
  Receipt Date: 20121210
  Transmission Date: 20130627
  Serious: Yes (Hospitalization, Other)
  Sender: FDA-Public Use
  Company Number: JP-PFIZER INC-2012306723

PATIENT
  Age: 20 Month
  Sex: Female
  Weight: 8.9 kg

DRUGS (9)
  1. LORAZEPAM [Suspect]
     Route: 048
  2. ALPRAZOLAM [Suspect]
     Route: 048
  3. BROMAZEPAM [Suspect]
     Route: 048
  4. ETHYL LOFLAZEPATE [Suspect]
     Route: 048
  5. BIPERIDEN [Concomitant]
     Route: 048
  6. BLONANSERIN [Concomitant]
     Route: 048
  7. MIRTAZAPINE [Concomitant]
     Route: 048
  8. VALPROIC ACID [Concomitant]
     Route: 048
  9. DULOXETINE [Concomitant]
     Route: 048

REACTIONS (2)
  - Accidental exposure to product by child [Unknown]
  - Parkinsonism [Unknown]
